FAERS Safety Report 18636492 (Version 1)
Quarter: 2020Q4

REPORT INFORMATION
  Report Type: Spontaneous
  Country: PL (occurrence: PL)
  Receive Date: 20201218
  Receipt Date: 20201218
  Transmission Date: 20210114
  Serious: No
  Sender: FDA-Public Use
  Company Number: PL-LUPIN PHARMACEUTICALS INC.-2020-08402

PATIENT
  Age: 60 Year
  Sex: Female

DRUGS (19)
  1. OXYCODONE HCL / NALOXONE HCL [Suspect]
     Active Substance: NALOXONE HYDROCHLORIDE\OXYCODONE HYDROCHLORIDE
     Indication: BONE PAIN
     Dosage: 1 DOSAGE FORM, QD (60MG/30 MG PROLONGED-RELEASE)
     Route: 065
  2. DULOXETINE. [Concomitant]
     Active Substance: DULOXETINE
     Indication: PRODUCT USED FOR UNKNOWN INDICATION
     Dosage: 60 MILLIGRAM, QD
     Route: 065
  3. DEXAMETHASONE. [Concomitant]
     Active Substance: DEXAMETHASONE
     Indication: PRODUCT USED FOR UNKNOWN INDICATION
     Dosage: UNK
     Route: 065
  4. PREGABALIN. [Concomitant]
     Active Substance: PREGABALIN
     Indication: BONE PAIN
     Dosage: 75 MILLIGRAM, QD
     Route: 065
  5. OXYCODONE [Suspect]
     Active Substance: OXYCODONE
     Dosage: 30 MILLIGRAM, QD (PROLONGED-RELEASE)
     Route: 065
  6. FENTANYL. [Suspect]
     Active Substance: FENTANYL
     Indication: BONE PAIN
     Dosage: 100 MICROGRAM
     Route: 062
  7. PREGABALIN. [Concomitant]
     Active Substance: PREGABALIN
     Dosage: 150 MILLIGRAM, QD
     Route: 065
  8. FENTANYL. [Suspect]
     Active Substance: FENTANYL
     Dosage: 150 MICROGRAM
     Route: 062
  9. KETOPROFEN. [Concomitant]
     Active Substance: KETOPROFEN
     Indication: BONE PAIN
     Dosage: 100 MILLIGRAM, QD
     Route: 065
  10. LACTULOSE. [Concomitant]
     Active Substance: LACTULOSE
     Indication: PRODUCT USED FOR UNKNOWN INDICATION
     Dosage: UNK
     Route: 065
  11. OXYCODONE HCL / NALOXONE HCL [Suspect]
     Active Substance: NALOXONE HYDROCHLORIDE\OXYCODONE HYDROCHLORIDE
     Dosage: 1 DOSAGE FORM, QD (40MG/ 20MG  PROLONGED-RELEASE))
     Route: 065
  12. OXYCODONE [Suspect]
     Active Substance: OXYCODONE
     Indication: BONE PAIN
     Dosage: 20 MILLIGRAM, QD (PROLONGED-RELEASE)
     Route: 065
  13. MORPHINE [Suspect]
     Active Substance: MORPHINE
     Indication: BREAKTHROUGH PAIN
     Dosage: 60 MILLIGRAM, QD (IMMEDIATE-RELEASE)
     Route: 048
  14. MORPHINE [Suspect]
     Active Substance: MORPHINE
     Indication: BONE PAIN
     Dosage: 36 MILLIGRAM, QD (GRADUALLY INCREASED TO 36 MG/DAY)
     Route: 058
  15. METAMIZOLE [Concomitant]
     Active Substance: METAMIZOLE
     Indication: PRODUCT USED FOR UNKNOWN INDICATION
     Dosage: UNK
     Route: 065
  16. BUPRENORPHINE. [Suspect]
     Active Substance: BUPRENORPHINE
     Indication: BONE PAIN
     Dosage: 52.5 MICROGRAM (PER HR)
     Route: 062
  17. ZOLEDRONIC ACID [Concomitant]
     Active Substance: ZOLEDRONIC ACID
     Indication: BONE PAIN
     Dosage: 4 MILLIGRAM (EVERY 28 DAYS)
     Route: 042
  18. PREGABALIN. [Concomitant]
     Active Substance: PREGABALIN
     Dosage: 450 MILLIGRAM, QD
     Route: 065
  19. PARACETAMOL [Concomitant]
     Active Substance: ACETAMINOPHEN
     Indication: BONE PAIN
     Dosage: 3 GRAM, QD
     Route: 065

REACTIONS (2)
  - Constipation [Unknown]
  - Depressed mood [Unknown]
